FAERS Safety Report 4870065-1 (Version None)
Quarter: 2005Q4

REPORT INFORMATION
  Report Type: 
  Country: None (occurrence: None)
  Receive Date: 20051223
  Receipt Date: 20051219
  Transmission Date: 20060501
  Serious: Yes (Other)
  Sender: FDA-Public Use
  Company Number: 2005BI021223

PATIENT
  Age: 51 Year
  Sex: Female

DRUGS (24)
  1. AVONEX [Suspect]
     Indication: MULTIPLE SCLEROSIS
     Dosage: 30 UG;QW;IM
     Route: 030
     Dates: start: 20000601
  2. HERBAVISION LUTEIN AND BILLBERRY [Concomitant]
  3. B-2 [Concomitant]
  4. B-12 [Concomitant]
  5. LECITHIN [Concomitant]
  6. BEE POLLEN COMPLEX [Concomitant]
  7. DIET SMART WITH EBCB [Concomitant]
  8. CRANBERRY CONCENTRATE [Concomitant]
  9. FISH OIL [Concomitant]
  10. ASCORBIC ACID [Concomitant]
  11. CALCIUM GLUCONATE [Concomitant]
  12. GARLIC [Concomitant]
  13. NATURAL AMINO LIQUID [Concomitant]
  14. ALOE GEL [Concomitant]
  15. FLAX SEED [Concomitant]
  16. POTASSIUM [Concomitant]
  17. ASPIRIN [Concomitant]
  18. ECHINACEA [Concomitant]
  19. EVENING PRIMROSE [Concomitant]
  20. ASTRAGALUS [Concomitant]
  21. TAURINE [Concomitant]
  22. SHARK CARTILAGE [Concomitant]
  23. ACIDOPHILUS [Concomitant]
  24. CIPRO [Concomitant]

REACTIONS (1)
  - BASAL CELL CARCINOMA [None]
